FAERS Safety Report 8431656-4 (Version None)
Quarter: 2012Q2

REPORT INFORMATION
  Report Type: 
  Country: None (occurrence: None)
  Receive Date: 20120613
  Receipt Date: 20120326
  Transmission Date: 20120825
  Serious: No
  Sender: FDA-Public Use
  Company Number: US-GLAXOSMITHKLINE-A0971174A

PATIENT
  Age: 47 Year
  Sex: Female

DRUGS (3)
  1. IBUPROFEN [Suspect]
     Indication: HEADACHE
     Route: 048
     Dates: start: 20110101
  2. IBUPROFEN [Concomitant]
  3. TREXIMET [Suspect]
     Indication: MIGRAINE
     Route: 048
     Dates: start: 20110101, end: 20120324

REACTIONS (3)
  - HEART RATE INCREASED [None]
  - DRUG INEFFECTIVE [None]
  - EXPIRED DRUG ADMINISTERED [None]
